FAERS Safety Report 12481520 (Version 1)
Quarter: 2016Q2

REPORT INFORMATION
  Report Type: Spontaneous
  Country: US (occurrence: US)
  Receive Date: 20160620
  Receipt Date: 20160620
  Transmission Date: 20160815
  Serious: Yes (Hospitalization)
  Sender: FDA-Public Use
  Company Number: US-NOVOPROD-496624

PATIENT
  Age: 75 Year
  Sex: Female
  Weight: 70.3 kg

DRUGS (3)
  1. IRON                               /00023503/ [Concomitant]
     Active Substance: IRON
     Indication: ANAEMIA
     Dosage: THREE TIMES A WEEK
  2. NOVOLOG [Suspect]
     Active Substance: INSULIN ASPART
     Indication: TYPE 2 DIABETES MELLITUS
     Dosage: SLIDING SCALE
     Route: 058
     Dates: end: 20160503
  3. LANTUS [Concomitant]
     Active Substance: INSULIN GLARGINE
     Indication: TYPE 2 DIABETES MELLITUS
     Dosage: UNK
     Dates: end: 20160609

REACTIONS (6)
  - Gastrooesophageal reflux disease [Recovered/Resolved]
  - Peripheral swelling [Unknown]
  - Pruritus generalised [Unknown]
  - Heart rate increased [Unknown]
  - Anxiety [Recovered/Resolved]
  - Injection site induration [Unknown]

NARRATIVE: CASE EVENT DATE: 20160503
